FAERS Safety Report 23313534 (Version 3)
Quarter: 2024Q1

REPORT INFORMATION
  Report Type: Report from Study
  Country: US (occurrence: None)
  Receive Date: 20231219
  Receipt Date: 20240308
  Transmission Date: 20240410
  Serious: Yes (Death, Other)
  Sender: FDA-Public Use
  Company Number: 2023A284645

PATIENT
  Age: 77 Year
  Sex: Male

DRUGS (1)
  1. CALQUENCE [Suspect]
     Active Substance: ACALABRUTINIB
     Indication: Chronic lymphocytic leukaemia
     Route: 048
     Dates: start: 20231004, end: 20231204

REACTIONS (6)
  - Respiratory failure [Fatal]
  - Diarrhoea [Fatal]
  - Weight decreased [Fatal]
  - Fatigue [Fatal]
  - Drug ineffective [Fatal]
  - Malignant neoplasm progression [Fatal]

NARRATIVE: CASE EVENT DATE: 20231011
